FAERS Safety Report 19020144 (Version 2)
Quarter: 2021Q2

REPORT INFORMATION
  Report Type: Report from Study
  Country: DE (occurrence: DE)
  Receive Date: 20210317
  Receipt Date: 20210630
  Transmission Date: 20210717
  Serious: Yes (Other)
  Sender: FDA-Public Use
  Company Number: DE-PFIZER INC-2021077706

PATIENT
  Age: 56 Year
  Sex: Female
  Weight: 53 kg

DRUGS (6)
  1. INSULIN [Concomitant]
     Active Substance: INSULIN NOS
     Dosage: UNK
     Route: 065
  2. FORTECORTIN [DEXAMETHASONE SODIUM PHOSPHATE] [Concomitant]
     Indication: METASTASES TO CENTRAL NERVOUS SYSTEM
     Dosage: UNK
     Route: 065
  3. ENCORAFENIB [Suspect]
     Active Substance: ENCORAFENIB
     Indication: MALIGNANT MELANOMA
     Dosage: 450 MG, QD (1/DAY)
     Route: 048
     Dates: start: 20200929
  4. BINIMETINIB [Suspect]
     Active Substance: BINIMETINIB
     Indication: MALIGNANT MELANOMA
     Dosage: 45 MG, BID (2/DAY)
     Route: 048
     Dates: start: 20200929, end: 20201203
  5. BINIMETINIB [Suspect]
     Active Substance: BINIMETINIB
     Dosage: 30 MG, BID (2/DAY)
     Route: 048
     Dates: start: 20201230
  6. BINIMETINIB [Suspect]
     Active Substance: BINIMETINIB
     Dosage: 22.5 MG, BID (2/DAY)
     Route: 048
     Dates: start: 20201207, end: 20201229

REACTIONS (4)
  - Blood creatine phosphokinase increased [Recovered/Resolved]
  - Dark circles under eyes [Recovered/Resolved]
  - Retinal detachment [Not Recovered/Not Resolved]
  - Blood creatine phosphokinase increased [Not Recovered/Not Resolved]

NARRATIVE: CASE EVENT DATE: 20200930
